FAERS Safety Report 8085748-2 (Version None)
Quarter: 2012Q1

REPORT INFORMATION
  Report Type: 
  Country: None (occurrence: None)
  Receive Date: 20120128
  Receipt Date: 20110404
  Transmission Date: 20120608
  Serious: No
  Sender: FDA-Public Use
  Company Number: US-ABBOTT-11P-163-0716855-00

PATIENT
  Sex: Male
  Weight: 118.04 kg

DRUGS (6)
  1. HUMIRA [Suspect]
     Indication: PRODUCT USED FOR UNKNOWN INDICATION
  2. HYDROCHLOROTHIAZIDE [Concomitant]
     Indication: HYPERTENSION
  3. ASPIRIN [Concomitant]
     Indication: PRODUCT USED FOR UNKNOWN INDICATION
  4. MELOXICAM [Concomitant]
     Indication: PRODUCT USED FOR UNKNOWN INDICATION
  5. PERCOCET [Concomitant]
     Indication: PAIN
  6. AMLODIPINE [Concomitant]
     Indication: HYPERTENSION

REACTIONS (4)
  - DEVICE MALFUNCTION [None]
  - ACCIDENTAL EXPOSURE [None]
  - WRONG TECHNIQUE IN DRUG USAGE PROCESS [None]
  - WRONG DRUG ADMINISTERED [None]
